FAERS Safety Report 16945069 (Version 4)
Quarter: 2020Q1

REPORT INFORMATION
  Report Type: Spontaneous
  Country: US (occurrence: US)
  Receive Date: 20191022
  Receipt Date: 20200326
  Transmission Date: 20200409
  Serious: No
  Sender: FDA-Public Use
  Company Number: US-BAYER-2019-179732

PATIENT
  Age: 6 Year
  Sex: Male

DRUGS (6)
  1. KOGENATE FS [Suspect]
     Active Substance: ANTIHEMOPHILIC FACTOR, HUMAN RECOMBINANT
     Indication: HAEMORRHAGE PROPHYLAXIS
     Dosage: 1000 IU
     Route: 042
  2. KOGENATE FS [Suspect]
     Active Substance: ANTIHEMOPHILIC FACTOR, HUMAN RECOMBINANT
     Indication: HAEMORRHAGE PROPHYLAXIS
     Dosage: 500 IU, ONCE - PROPHYLAXIS (MONDAY)
     Route: 042
     Dates: start: 202002, end: 202002
  3. KOGENATE FS [Suspect]
     Active Substance: ANTIHEMOPHILIC FACTOR, HUMAN RECOMBINANT
     Indication: HAEMORRHAGE PROPHYLAXIS
     Dosage: 500+1000=1500 UN
     Route: 042
  4. KOGENATE FS [Suspect]
     Active Substance: ANTIHEMOPHILIC FACTOR, HUMAN RECOMBINANT
     Indication: HAEMORRHAGE PROPHYLAXIS
     Dosage: 500 IU, ONCE - PROPHYLAXIS (WEDNESDAY)
     Route: 042
     Dates: start: 202002, end: 202002
  5. KOGENATE FS [Suspect]
     Active Substance: ANTIHEMOPHILIC FACTOR, HUMAN RECOMBINANT
     Indication: HAEMORRHAGE PROPHYLAXIS
     Dosage: 500 IU, ONCE - PROPHYLAXIS (SUNDAY)
     Route: 042
     Dates: start: 202002, end: 202002
  6. KOGENATE FS [Suspect]
     Active Substance: ANTIHEMOPHILIC FACTOR, HUMAN RECOMBINANT
     Indication: HAEMORRHAGE PROPHYLAXIS
     Dosage: 500 IU, ONCE - PROPHYLAXIS (TUESDAY)
     Route: 042
     Dates: start: 202002, end: 202002

REACTIONS (8)
  - Contusion [None]
  - Gait disturbance [Recovered/Resolved]
  - Contusion [Recovered/Resolved]
  - Fall [None]
  - Fall [Recovered/Resolved]
  - Joint injury [Recovered/Resolved]
  - Contusion [None]
  - Head injury [Recovered/Resolved]

NARRATIVE: CASE EVENT DATE: 20190909
